FAERS Safety Report 9790671 (Version 2)
Quarter: 2014Q1

REPORT INFORMATION
  Report Type: Spontaneous
  Country: JP (occurrence: JP)
  Receive Date: 20131231
  Receipt Date: 20140116
  Transmission Date: 20141002
  Serious: Yes (Life-Threatening)
  Sender: FDA-Public Use
  Company Number: JP-GLAXOSMITHKLINE-B0944896A

PATIENT
  Age: 68 Year
  Sex: Male

DRUGS (11)
  1. VALTREX [Suspect]
     Indication: VARICELLA
     Dosage: 1000MG THREE TIMES PER DAY
     Route: 048
     Dates: start: 20131023, end: 20131027
  2. BAYASPIRIN [Suspect]
     Indication: CORONARY ANGIOPLASTY
     Dosage: 100MG PER DAY
     Route: 048
  3. LOXOPROFEN [Suspect]
     Indication: ANTIPYRESIS
     Route: 048
     Dates: start: 20131022, end: 20131027
  4. PL [Suspect]
     Indication: NASOPHARYNGITIS
     Dosage: 1G THREE TIMES PER DAY
     Route: 048
     Dates: start: 20131022, end: 20131027
  5. FLOMOX [Suspect]
     Indication: NASOPHARYNGITIS
     Dosage: 100MG THREE TIMES PER DAY
     Route: 048
     Dates: start: 20131022, end: 20131027
  6. METGLUCO [Suspect]
     Indication: DIABETES MELLITUS
     Dosage: 250MG PER DAY
     Route: 048
     Dates: end: 20131027
  7. AMLODIPINE [Suspect]
     Indication: HYPERTENSION
     Dosage: 2.5MG PER DAY
     Route: 048
     Dates: end: 20131027
  8. PLAVIX [Suspect]
     Indication: CORONARY ANGIOPLASTY
     Dosage: 75MG PER DAY
     Route: 048
     Dates: end: 20131027
  9. PARIET [Suspect]
     Indication: PROPHYLAXIS AGAINST GASTROINTESTINAL ULCER
     Dosage: 10MG PER DAY
     Route: 048
     Dates: end: 20131027
  10. ATORVASTATIN [Suspect]
     Indication: HYPERLIPIDAEMIA
     Dosage: 5MG PER DAY
     Route: 048
     Dates: end: 20131027
  11. MICARDIS [Suspect]
     Indication: HYPERTENSION
     Dosage: 40MG PER DAY
     Route: 048
     Dates: end: 20131027

REACTIONS (3)
  - Liver disorder [Recovering/Resolving]
  - Malnutrition [Recovering/Resolving]
  - Hyponatraemia [Recovering/Resolving]
